FAERS Safety Report 11292283 (Version 1)
Quarter: 2015Q3

REPORT INFORMATION
  Report Type: Report from Study
  Country: US (occurrence: US)
  Receive Date: 20150722
  Receipt Date: 20150722
  Transmission Date: 20151125
  Serious: Yes (Death)
  Sender: FDA-Public Use
  Company Number: US-ACTELION-A-NJ2015-121151

PATIENT
  Age: 71 Year
  Sex: Female

DRUGS (1)
  1. VELETRI [Suspect]
     Active Substance: EPOPROSTENOL
     Indication: PULMONARY ARTERIAL HYPERTENSION
     Dosage: 15.4 NG/KG, PER MIN
     Route: 042
     Dates: start: 20101020, end: 20150711

REACTIONS (1)
  - Death [Fatal]

NARRATIVE: CASE EVENT DATE: 20150711
